FAERS Safety Report 16777092 (Version 1)
Quarter: 2019Q3

REPORT INFORMATION
  Report Type: Spontaneous
  Country: US (occurrence: US)
  Receive Date: 20190905
  Receipt Date: 20190905
  Transmission Date: 20191005
  Serious: Yes (Other)
  Sender: FDA-Public Use
  Company Number: US-PFIZER INC-2019380057

PATIENT
  Age: 66 Year
  Sex: Female

DRUGS (2)
  1. PREMARIN [Suspect]
     Active Substance: ESTROGENS, CONJUGATED
     Indication: ATROPHIC VULVOVAGINITIS
     Dosage: UNK (NO DOSE) JUST USE AS DIRECTED (ONCE DAILY FOR 2 WEEKS THEN TWICE A WEEK THERE AFTER)
     Route: 067
  2. PREMARIN [Suspect]
     Active Substance: ESTROGENS, CONJUGATED
     Dosage: UNK (NO DOSE) JUST USE AS DIRECTED (ONCE DAILY FOR 2 WEEKS THEN TWICE A WEEK THERE AFTER)
     Route: 067

REACTIONS (3)
  - Product complaint [Recovering/Resolving]
  - Vaginal laceration [Recovering/Resolving]
  - Vaginal haemorrhage [Recovering/Resolving]
